FAERS Safety Report 8279554 (Version 2)
Quarter: 2013Q4

REPORT INFORMATION
  Report Type: Spontaneous
  Country: US (occurrence: US)
  Receive Date: 20111208
  Receipt Date: 20131030
  Transmission Date: 20140711
  Serious: Yes (Other)
  Sender: FDA-Public Use
  Company Number: US-US-EMD SERONO, INC.-7005306

PATIENT
  Age: 50 Year
  Sex: Female
  Weight: 75 kg

DRUGS (5)
  1. REBIF [Suspect]
     Indication: MULTIPLE SCLEROSIS
     Route: 058
     Dates: start: 20040308
  2. VALIUM [Concomitant]
     Indication: VERTIGO
     Route: 048
  3. LEVOTHYROXINE [Concomitant]
     Indication: THYROID DISORDER
     Route: 048
  4. FLUTICASONE SPRAY [Concomitant]
     Indication: SEASONAL ALLERGY
     Route: 045
  5. MULTIVITAMIN [Concomitant]
     Route: 048

REACTIONS (7)
  - Injection site haemorrhage [Unknown]
  - Injection site pain [Recovering/Resolving]
  - Meniscus injury [Recovering/Resolving]
  - Nerve compression [Unknown]
  - Joint swelling [Recovering/Resolving]
  - Joint swelling [Recovering/Resolving]
  - Hypothyroidism [Recovered/Resolved]
